FAERS Safety Report 13010343 (Version 1)
Quarter: 2016Q4

REPORT INFORMATION
  Report Type: Report from Study
  Country: BR (occurrence: BR)
  Receive Date: 20161208
  Receipt Date: 20161208
  Transmission Date: 20170207
  Serious: Yes (Death, Hospitalization)
  Sender: FDA-Public Use
  Company Number: PHHY2016BR168707

PATIENT
  Sex: Female
  Weight: 69 kg

DRUGS (3)
  1. EXELON PATCH [Suspect]
     Active Substance: RIVASTIGMINE
     Indication: DEMENTIA ALZHEIMER^S TYPE
     Dosage: 13.3 MG, PATCH 15 (CM2), QD
     Route: 062
  2. EXELON [Suspect]
     Active Substance: RIVASTIGMINE TARTRATE
     Indication: PRODUCT USED FOR UNKNOWN INDICATION
     Route: 048
  3. EXELON [Suspect]
     Active Substance: RIVASTIGMINE TARTRATE
     Indication: PRODUCT USED FOR UNKNOWN INDICATION
     Route: 048

REACTIONS (9)
  - Pneumonia [Fatal]
  - Abasia [Fatal]
  - Tongue movement disturbance [Fatal]
  - Dementia Alzheimer^s type [Fatal]
  - Dysphagia [Fatal]
  - Dehydration [Fatal]
  - Paralysis [Fatal]
  - Condition aggravated [Fatal]
  - Eating disorder [Fatal]
